FAERS Safety Report 9247918 (Version 1)
Quarter: 2013Q2

REPORT INFORMATION
  Report Type: Spontaneous
  Country: US (occurrence: None)
  Receive Date: 20130419
  Receipt Date: 20130419
  Transmission Date: 20140414
  Serious: Yes (Death, Life-Threatening, Hospitalization, Disabling, Congenital Anomaly, Other)
  Sender: FDA-Public Use
  Company Number: None

PATIENT
  Age: 31 Year
  Sex: Male
  Weight: 104.33 kg

DRUGS (1)
  1. PROPECIA 1 MG MERCK [Suspect]
     Indication: ALOPECIA
     Dates: start: 20020601, end: 20021119

REACTIONS (8)
  - Lethargy [None]
  - Dizziness [None]
  - Suicidal ideation [None]
  - Anxiety [None]
  - Stress [None]
  - Mental impairment [None]
  - Cognitive disorder [None]
  - Disorientation [None]
